FAERS Safety Report 23202576 (Version 1)
Quarter: 2023Q4

REPORT INFORMATION
  Report Type: Spontaneous
  Country: US (occurrence: US)
  Receive Date: 20231120
  Receipt Date: 20231120
  Transmission Date: 20240109
  Serious: No
  Sender: FDA-Public Use
  Company Number: US-GSK-US2023156101

PATIENT
  Sex: Female

DRUGS (1)
  1. NUCALA [Suspect]
     Active Substance: MEPOLIZUMAB
     Indication: Product used for unknown indication
     Dosage: UNK

REACTIONS (7)
  - Illness [Unknown]
  - Dyspnoea [Unknown]
  - Cough [Unknown]
  - Inflammation [Unknown]
  - Bronchitis [Unknown]
  - Immune system disorder [Unknown]
  - Product dose omission issue [Unknown]
